FAERS Safety Report 25887051 (Version 2)
Quarter: 2025Q4

REPORT INFORMATION
  Report Type: Spontaneous
  Country: US (occurrence: US)
  Receive Date: 20251006
  Receipt Date: 20251024
  Transmission Date: 20260118
  Serious: No
  Sender: DR REDDYS
  Company Number: US-DRL-USA-USA/2025/08/012776

PATIENT
  Sex: Male

DRUGS (2)
  1. CLONIDINE TRANSDERMAL SYSTEM USP, 0.2 MG/DAY [Suspect]
     Active Substance: CLONIDINE
     Indication: Hypertension
     Dosage: THE PATIENT HAD BEEN USING THESE PATCHES FOR THE LAST FIVE YEARS
     Route: 062
  2. CLONIDINE TRANSDERMAL SYSTEM USP, 0.2 MG/DAY [Suspect]
     Active Substance: CLONIDINE
     Dosage: SERIAL NUMBER WAS WAVJAUCM4WQC
     Route: 062

REACTIONS (2)
  - Product adhesion issue [Unknown]
  - Circumstance or information capable of leading to medication error [Unknown]
